FAERS Safety Report 9330825 (Version 2)
Quarter: 2013Q2

REPORT INFORMATION
  Report Type: Spontaneous
  Country: US (occurrence: US)
  Receive Date: 20130605
  Receipt Date: 20130617
  Transmission Date: 20140414
  Serious: Yes (Hospitalization, Other)
  Sender: FDA-Public Use
  Company Number: PHEH2013US012168

PATIENT
  Age: 60 Year
  Sex: Female
  Weight: 105 kg

DRUGS (20)
  1. MYFORTIC [Suspect]
     Indication: PROPHYLAXIS AGAINST TRANSPLANT REJECTION
     Dosage: 360 MG, OF 12 HOURS
     Route: 048
     Dates: start: 20071120, end: 20100929
  2. MYFORTIC [Suspect]
     Dosage: 540 MG, OF 12 HOURS
     Route: 048
     Dates: start: 20100929, end: 20101228
  3. MYFORTIC [Suspect]
     Dosage: 720 MG, Q12H
     Route: 048
     Dates: start: 20101208
  4. PROGRAF [Concomitant]
     Indication: PROPHYLAXIS AGAINST TRANSPLANT REJECTION
     Dosage: 2 MG, QAM
     Route: 048
     Dates: start: 20070530
  5. CYMBALTA [Concomitant]
     Indication: DEPRESSION
     Dosage: 30 MG, UNK
     Route: 048
     Dates: start: 20130122
  6. LYRICA [Concomitant]
  7. PREDNISONE [Concomitant]
     Indication: PROPHYLAXIS AGAINST TRANSPLANT REJECTION
     Dosage: 10 MG, QD
     Route: 048
     Dates: start: 20101026
  8. LOPRESSOR [Concomitant]
     Indication: HYPERTENSION
     Dosage: 75 MG, Q12H
     Route: 048
     Dates: start: 20060825
  9. MAGNESIUM OXIDE [Concomitant]
     Indication: BLOOD MAGNESIUM DECREASED
     Dosage: 400 MG, BID
     Route: 048
     Dates: start: 20130306
  10. ZETIA [Concomitant]
     Indication: LIPIDS INCREASED
     Dosage: 10 MG, HS
     Route: 048
     Dates: start: 20130129
  11. SIMVASTATIN [Concomitant]
     Indication: LIPIDS INCREASED
     Dosage: 20 MG, HS
     Route: 048
     Dates: start: 20130129
  12. VIT D [Concomitant]
     Indication: VITAMIN D DECREASED
     Dosage: 2000 MG, UNK
     Route: 048
     Dates: start: 20120313
  13. CALTRATE [Concomitant]
     Indication: OSTEOPENIA
     Dosage: 600 MG, BID
     Route: 048
     Dates: start: 20120313
  14. SENSIPAR [Concomitant]
     Dosage: 30 MG, UNK
     Route: 048
     Dates: start: 20120113
  15. TACROLIMUS [Concomitant]
     Indication: PROPHYLAXIS AGAINST TRANSPLANT REJECTION
     Dosage: 2 MG, HS
     Route: 048
     Dates: start: 20100924
  16. LOVAZA [Concomitant]
     Indication: LIPIDS INCREASED
     Dosage: 2 MG, BID
     Route: 048
     Dates: start: 20071127
  17. C-VITAMIN [Concomitant]
     Indication: ALOPECIA
     Dosage: 500 MG, BID
     Route: 048
     Dates: start: 20060515
  18. ZINC SULFATE [Concomitant]
     Indication: ALOPECIA
     Dosage: 50 MG, UNK
     Route: 048
     Dates: start: 20060515
  19. FOLIC ACID [Concomitant]
     Indication: ALOPECIA
     Dosage: 1 MG, UNK
     Route: 048
     Dates: start: 20060515
  20. ACIPHEX [Concomitant]
     Dosage: 20 MG, BID
     Route: 048
     Dates: start: 20051215

REACTIONS (3)
  - Lower limb fracture [Unknown]
  - Deafness unilateral [Unknown]
  - Ankle fracture [Unknown]
